FAERS Safety Report 15253460 (Version 1)
Quarter: 2018Q4

REPORT INFORMATION
  Report Type: Spontaneous
  Country: FR (occurrence: FR)
  Receive Date: 20180808
  Receipt Date: 20180808
  Transmission Date: 20190204
  Serious: Yes (Hospitalization)
  Sender: FDA-Public Use
  Company Number: FR-CONCORDIA PHARMACEUTICALS INC.-E2B_00015808

PATIENT
  Age: 73 Year
  Sex: Female
  Weight: 82 kg

DRUGS (13)
  1. EMEND [Suspect]
     Active Substance: APREPITANT
     Indication: PROPHYLAXIS OF NAUSEA AND VOMITING
     Dosage: 125 MG J1 PUIS 80 MG A J2 ET J3
     Route: 048
     Dates: start: 20180628, end: 20180630
  2. LISINOPRIL BIOGARAN 5 MG, COMPRIME SECABLE [Concomitant]
  3. METHYLPREDNISOLONE MYLAN [Suspect]
     Active Substance: METHYLPREDNISOLONE
     Indication: PREMEDICATION
     Dosage: 80 MG A J1
     Route: 042
     Dates: start: 20180522, end: 20180612
  4. ZARZIO [Suspect]
     Active Substance: FILGRASTIM
     Indication: CHEMOTHERAPY CYTOKINE PROPHYLAXIS
     Dosage: A PARTIR DE J3
     Route: 042
     Dates: start: 20180525, end: 20180622
  5. ONDANSETRON ACCORD 2 MG/ML, SOLUTION INJECTABLE [Suspect]
     Active Substance: ONDANSETRON HYDROCHLORIDE
     Indication: PROPHYLAXIS OF NAUSEA AND VOMITING
     Dosage: 8 MG A J1
     Route: 042
     Dates: start: 20180522, end: 20180612
  6. DOCETAXEL ACCORD 160 MG/8 ML, SOLUTION A DILUER POUR PERFUSION [Suspect]
     Active Substance: DOCETAXEL
     Indication: BREAST CANCER
     Route: 042
     Dates: start: 20180522, end: 20180612
  7. PANTOPRAZOLE ALMUS 20 MG, COMPRIME GASTRO-RESISTANT [Concomitant]
  8. CYCLOPHOSPHAMIDE SANDOZ [Suspect]
     Active Substance: CYCLOPHOSPHAMIDE
     Indication: BREAST CANCER
     Route: 041
     Dates: start: 20180522, end: 20180612
  9. SPIRONOLACTONE ACTAVIS 25 MG, COMPRIME PELLICULE SECABLE [Concomitant]
  10. ASPIRINE PROTECT 100 MG, COMPRIME GASTRO-RESISTANT [Concomitant]
  11. PREDNISOLONE. [Suspect]
     Active Substance: PREDNISOLONE
     Indication: PREMEDICATION
     Dosage: 100 MG DE J0 A J4
     Route: 048
     Dates: start: 20180521, end: 20180614
  12. NEO-MERCAZOLE 20 MG, COMPRIME [Concomitant]
  13. BISOPROLOL BIOGARAN [Concomitant]
     Active Substance: BISOPROLOL FUMARATE

REACTIONS (3)
  - Hepatocellular injury [Not Recovered/Not Resolved]
  - Hepatic pain [Not Recovered/Not Resolved]
  - Jaundice [Not Recovered/Not Resolved]

NARRATIVE: CASE EVENT DATE: 20180623
